FAERS Safety Report 9314341 (Version 1)
Quarter: 2013Q2

REPORT INFORMATION
  Report Type: Spontaneous
  Country: US (occurrence: None)
  Receive Date: 20130522
  Receipt Date: 20130522
  Transmission Date: 20140414
  Serious: Yes (Other)
  Sender: FDA-Public Use
  Company Number: ACO_36202_2013

PATIENT
  Age: 52 Year
  Sex: Female

DRUGS (3)
  1. AMPYRA (DALFAMPRIDINE) TABLET, 10MG [Suspect]
     Indication: PRODUCT USED FOR UNKNOWN INDICATION
     Dates: start: 20130128
  2. TECFIDERA (DIMETHYL FUMARATE) [Concomitant]
  3. PROBIOTIC ACIDOPHILUS (LACTOBACILLUS ACIDOPHILUS) CAPSULE [Concomitant]

REACTIONS (3)
  - Vaginal haemorrhage [None]
  - Flushing [None]
  - Rash [None]
